FAERS Safety Report 7864134-1 (Version None)
Quarter: 2011Q4

REPORT INFORMATION
  Report Type: 
  Country: None (occurrence: None)
  Receive Date: 20111028
  Receipt Date: 20111024
  Transmission Date: 20120403
  Serious: Yes (Other)
  Sender: FDA-Public Use
  Company Number: US-JNJFOC-20100808213

PATIENT
  Sex: Female

DRUGS (3)
  1. PREDNISONE [Suspect]
     Indication: PAIN
     Route: 065
  2. LEVAQUIN [Suspect]
     Indication: STAPHYLOCOCCAL INFECTION
     Route: 048
     Dates: start: 20080731, end: 20080831
  3. LEVAQUIN [Suspect]
     Indication: SKIN INFECTION
     Route: 048
     Dates: start: 20080731, end: 20080831

REACTIONS (3)
  - TENDONITIS [None]
  - PLANTAR FASCIITIS [None]
  - COLITIS [None]
